FAERS Safety Report 14347043 (Version 1)
Quarter: 2018Q1

REPORT INFORMATION
  Report Type: Spontaneous
  Country: NO (occurrence: NO)
  Receive Date: 20180103
  Receipt Date: 20180103
  Transmission Date: 20180509
  Serious: Yes (Hospitalization)
  Sender: FDA-Public Use
  Company Number: NO-PFIZER INC-2018002362

PATIENT
  Age: 27 Year
  Sex: Female

DRUGS (2)
  1. NEURONTIN [Suspect]
     Active Substance: GABAPENTIN
     Indication: BACK PAIN
     Dosage: STANDARD DOSE
     Route: 048
     Dates: start: 20170920
  2. PARACET [Concomitant]
     Active Substance: ACETAMINOPHEN

REACTIONS (2)
  - Product use in unapproved indication [Unknown]
  - Suicidal behaviour [Recovering/Resolving]

NARRATIVE: CASE EVENT DATE: 20171009
